FAERS Safety Report 15585045 (Version 1)
Quarter: 2018Q4

REPORT INFORMATION
  Report Type: Spontaneous
  Country: US (occurrence: US)
  Receive Date: 20181102
  Receipt Date: 20181102
  Transmission Date: 20190205
  Serious: No
  Sender: FDA-Public Use
  Company Number: US-MIST-TIR-2018-0135

PATIENT
  Age: 47 Year
  Sex: Male
  Weight: 84.9 kg

DRUGS (2)
  1. TIROSINT [Suspect]
     Active Substance: LEVOTHYROXINE SODIUM
     Indication: AUTOIMMUNE THYROIDITIS
     Dosage: 137MCG DAILY
     Route: 048
     Dates: start: 201802
  2. CYTOMEL [Concomitant]
     Active Substance: LIOTHYRONINE SODIUM
     Indication: PRODUCT USED FOR UNKNOWN INDICATION

REACTIONS (4)
  - Feeling jittery [Unknown]
  - Weight decreased [Unknown]
  - Hyperthyroidism [Unknown]
  - Malaise [Unknown]

NARRATIVE: CASE EVENT DATE: 201802
